FAERS Safety Report 20837960 (Version 1)
Quarter: 2022Q2

REPORT INFORMATION
  Report Type: Spontaneous
  Country: US (occurrence: US)
  Receive Date: 20220517
  Receipt Date: 20220517
  Transmission Date: 20220721
  Serious: No
  Sender: FDA-Public Use
  Company Number: US-Accord-226013

PATIENT
  Sex: Female

DRUGS (3)
  1. ATORVASTATIN [Suspect]
     Active Substance: ATORVASTATIN
     Indication: Blood triglycerides increased
     Dosage: DAILY
     Route: 048
     Dates: start: 20210504
  2. LISINOPRIL [Concomitant]
     Active Substance: LISINOPRIL
  3. METFORMIN [Concomitant]
     Active Substance: METFORMIN HYDROCHLORIDE

REACTIONS (4)
  - Muscle spasms [Unknown]
  - Abnormal dreams [Unknown]
  - Nightmare [Unknown]
  - Pollakiuria [Unknown]
